FAERS Safety Report 5413788-8 (Version None)
Quarter: 2007Q3

REPORT INFORMATION
  Report Type: 
  Country: None (occurrence: None)
  Receive Date: 20070810
  Receipt Date: 20070720
  Transmission Date: 20080115
  Serious: Yes (Other)
  Sender: FDA-Public Use
  Company Number: 2007RR-08844

PATIENT
  Age: 30 Year
  Sex: Male

DRUGS (4)
  1. MINOCYCLINE HCL [Suspect]
     Dosage: 300 MG, QD
  2. TETRACYCLINE HCL [Suspect]
  3. MINOCYCLINE HCL [Concomitant]
  4. DOXYCYCLINE [Suspect]
     Dosage: 100 MG, BID

REACTIONS (2)
  - ACUTE FEBRILE NEUTROPHILIC DERMATOSIS [None]
  - REFUSAL OF TREATMENT BY PATIENT [None]
